FAERS Safety Report 6732252-7 (Version None)
Quarter: 2010Q2

REPORT INFORMATION
  Report Type: 
  Country: None (occurrence: None)
  Receive Date: 20100519
  Receipt Date: 20100510
  Transmission Date: 20101027
  Serious: Yes (Hospitalization)
  Sender: FDA-Public Use
  Company Number: B0530828A

PATIENT
  Sex: Male
  Weight: 81 kg

DRUGS (13)
  1. ACYCLOVIR [Suspect]
     Indication: HERPES ZOSTER
     Dosage: 3000MG PER DAY
     Route: 048
     Dates: start: 20080716, end: 20080718
  2. LOXONIN [Suspect]
     Indication: HERPES ZOSTER
     Dosage: 180MG PER DAY
     Route: 048
     Dates: start: 20080716, end: 20080719
  3. ACYCLOVIR SODIUM [Suspect]
     Indication: HERPES ZOSTER
     Route: 042
     Dates: start: 20080718, end: 20080719
  4. CYANOCOBALAMIN [Concomitant]
     Indication: NEUROPATHY PERIPHERAL
     Dosage: 1500MG PER DAY
     Route: 048
     Dates: start: 20080716, end: 20080719
  5. SELBEX [Concomitant]
     Indication: GASTRITIS
     Dosage: 150MG PER DAY
     Route: 048
     Dates: start: 20080716, end: 20080719
  6. GASCON [Concomitant]
     Indication: ABDOMINAL DISTENSION
     Dosage: 120MG PER DAY
     Route: 048
     Dates: start: 20080716, end: 20080719
  7. CEREKINON [Concomitant]
     Indication: ABDOMINAL DISTENSION
     Dosage: 300MG PER DAY
     Route: 048
     Dates: start: 20080716, end: 20080719
  8. NSAIDS [Concomitant]
  9. URINORM [Concomitant]
     Route: 048
  10. URALYT [Concomitant]
     Route: 048
  11. PROBUCOL [Concomitant]
     Route: 048
  12. LIPIDIL [Concomitant]
     Route: 048
  13. MEVALOTIN [Concomitant]
     Route: 048

REACTIONS (11)
  - BLOOD CREATININE INCREASED [None]
  - BLOOD UREA INCREASED [None]
  - CREATININE RENAL CLEARANCE ABNORMAL [None]
  - DYSARTHRIA [None]
  - FEELING ABNORMAL [None]
  - MENTAL IMPAIRMENT [None]
  - OEDEMA [None]
  - OLIGURIA [None]
  - RENAL FAILURE ACUTE [None]
  - TOXIC ENCEPHALOPATHY [None]
  - URINE OUTPUT DECREASED [None]
